FAERS Safety Report 10582581 (Version 2)
Quarter: 2015Q1

REPORT INFORMATION
  Report Type: Spontaneous
  Country: IT (occurrence: IT)
  Receive Date: 20141113
  Receipt Date: 20150127
  Transmission Date: 20150720
  Serious: Yes (Other)
  Sender: FDA-Public Use
  Company Number: IT-TEVA-522136ISR

PATIENT
  Age: 93 Year
  Sex: Male

DRUGS (1)
  1. QUETIAPINA TEVA 100 MG [Suspect]
     Active Substance: QUETIAPINE
     Dosage: 175 MILLIGRAM DAILY;
     Route: 048
     Dates: start: 20140406, end: 20140830

REACTIONS (7)
  - Aggression [Unknown]
  - Insomnia [Unknown]
  - Hallucination, visual [Unknown]
  - Dissociative disorder [Unknown]
  - Dementia [Unknown]
  - Hallucination, auditory [Unknown]
  - Irritability [Unknown]

NARRATIVE: CASE EVENT DATE: 20140407
